FAERS Safety Report 14360345 (Version 1)
Quarter: 2018Q1

REPORT INFORMATION
  Report Type: Not Available
  Country: US (occurrence: US)
  Receive Date: 20180106
  Receipt Date: 20180106
  Transmission Date: 20180509
  Serious: No
  Sender: FDA-Public Use
  Company Number: US-NEUROCRINE BIOSCIENCES INC.-2017NBI01604

PATIENT
  Age: 50 Year
  Sex: Female
  Weight: 49.49 kg

DRUGS (15)
  1. EFFEXOR XR [Concomitant]
     Active Substance: VENLAFAXINE HYDROCHLORIDE
  2. NARATRIPTAN [Concomitant]
     Active Substance: NARATRIPTAN HYDROCHLORIDE
     Indication: MIGRAINE
  3. EFFEXOR [Concomitant]
     Active Substance: VENLAFAXINE HYDROCHLORIDE
  4. MIDODRINE [Concomitant]
     Active Substance: MIDODRINE
  5. INGREZZA [Suspect]
     Active Substance: VALBENAZINE
     Route: 048
     Dates: start: 201711
  6. POTASSIUM [Concomitant]
     Active Substance: POTASSIUM
  7. TOPAMAX [Concomitant]
     Active Substance: TOPIRAMATE
  8. EQVED LAXATIVE [Concomitant]
  9. CLARITIN [Concomitant]
     Active Substance: LORATADINE
  10. INGREZZA [Suspect]
     Active Substance: VALBENAZINE
     Indication: TARDIVE DYSKINESIA
     Route: 048
     Dates: start: 2017, end: 201711
  11. FOLIC ACID. [Concomitant]
     Active Substance: FOLIC ACID
  12. BENZTROPINE. [Concomitant]
     Active Substance: BENZTROPINE
  13. BENZTROPINE. [Concomitant]
     Active Substance: BENZTROPINE
  14. KLONOPIN [Concomitant]
     Active Substance: CLONAZEPAM
  15. PREVACID [Concomitant]
     Active Substance: LANSOPRAZOLE

REACTIONS (1)
  - Urticaria [Not Recovered/Not Resolved]

NARRATIVE: CASE EVENT DATE: 20171114
